FAERS Safety Report 18387153 (Version 1)
Quarter: 2020Q4

REPORT INFORMATION
  Report Type: Spontaneous
  Country: US (occurrence: US)
  Receive Date: 20201015
  Receipt Date: 20201015
  Transmission Date: 20210114
  Serious: Yes (Other)
  Sender: FDA-Public Use
  Company Number: US-CHIESI USA, INC.-US-2020CHI000617

PATIENT

DRUGS (5)
  1. KENGREAL [Suspect]
     Active Substance: CANGRELOR
     Indication: ANGINA UNSTABLE
     Dosage: 0.75 UNK
     Route: 042
     Dates: start: 2020
  2. KENGREAL [Suspect]
     Active Substance: CANGRELOR
     Indication: CORONARY ARTERY BYPASS
     Dosage: UNK
     Route: 042
  3. HEPARIN [Concomitant]
     Active Substance: HEPARIN SODIUM
     Indication: PRODUCT USED FOR UNKNOWN INDICATION
     Dosage: UNK
  4. KENGREAL [Suspect]
     Active Substance: CANGRELOR
     Indication: CORONARY ARTERIAL STENT INSERTION
  5. KENGREAL [Suspect]
     Active Substance: CANGRELOR
     Indication: OFF LABEL USE

REACTIONS (5)
  - Incorrect dose administered [Unknown]
  - Vascular stent thrombosis [Unknown]
  - Off label use [Unknown]
  - Inappropriate schedule of product administration [Unknown]
  - Hemiparesis [Unknown]

NARRATIVE: CASE EVENT DATE: 2020
